FAERS Safety Report 5809081-1 (Version None)
Quarter: 2008Q3

REPORT INFORMATION
  Report Type: 
  Country: None (occurrence: None)
  Receive Date: 20080711
  Receipt Date: 20080711
  Transmission Date: 20090109
  Serious: Yes (Death)
  Sender: FDA-Public Use
  Company Number: None

PATIENT
  Age: 48 Year
  Sex: Female
  Weight: 83.9154 kg

DRUGS (1)
  1. ZOLOFT [Suspect]

REACTIONS (2)
  - ADVERSE EVENT [None]
  - COMPLETED SUICIDE [None]
